FAERS Safety Report 5584208-8 (Version None)
Quarter: 2008Q1

REPORT INFORMATION
  Report Type: 
  Country: None (occurrence: None)
  Receive Date: 20080103
  Receipt Date: 20071218
  Transmission Date: 20080703
  Serious: Yes (Life-Threatening, Other)
  Sender: FDA-Public Use
  Company Number: VER_00092_2007

PATIENT
  Sex: Male

DRUGS (6)
  1. EPINEPHRINE [Suspect]
     Indication: ANAPHYLACTIC REACTION
     Dosage: 0.3 MG, INTRAMUSCULAR
     Route: 030
  2. ALBUTEROL [Concomitant]
  3. ALLEGRA [Concomitant]
  4. ASMANEX TWISTHALER [Concomitant]
  5. SINGULAIR [Concomitant]
  6. XOLAIR [Concomitant]

REACTIONS (2)
  - DEVICE FAILURE [None]
  - PHARMACEUTICAL PRODUCT COMPLAINT [None]
